FAERS Safety Report 22522401 (Version 1)
Quarter: 2023Q2

REPORT INFORMATION
  Report Type: Spontaneous
  Country: KR (occurrence: KR)
  Receive Date: 20230605
  Receipt Date: 20230605
  Transmission Date: 20230722
  Serious: Yes (Hospitalization)
  Sender: FDA-Public Use
  Company Number: KR-ORGANON-O2305KOR003121

PATIENT
  Age: 53 Year
  Sex: Female

DRUGS (8)
  1. COZAAR [Suspect]
     Active Substance: LOSARTAN POTASSIUM
     Indication: Raynaud^s phenomenon
     Dosage: 1 FORMULATION, QD, FILM-COATED TABLETS
     Route: 048
     Dates: start: 20150119
  2. LIMAPROST [Concomitant]
     Active Substance: LIMAPROST
     Indication: Raynaud^s phenomenon
     Dosage: 1 FORMULATION, 0.33 DAYS, UNCOATED TABLET
     Route: 048
     Dates: start: 20160712
  3. FOLIC ACID [Concomitant]
     Active Substance: FOLIC ACID
     Indication: Raynaud^s phenomenon
     Dosage: 1 FORMULATION, QD
     Dates: start: 20160929
  4. CHOLECALCIFEROL [Concomitant]
     Active Substance: CHOLECALCIFEROL
     Indication: Osteoporosis
     Dosage: 1 FORMULATION, QD
     Dates: start: 20170612
  5. METHOTREXATE [Concomitant]
     Active Substance: METHOTREXATE
     Indication: Raynaud^s phenomenon
     Dosage: 4 FORMULATION, QW
     Route: 048
     Dates: start: 20160929
  6. HYDROXYCHLOROQUINE SULFATE [Concomitant]
     Active Substance: HYDROXYCHLOROQUINE SULFATE
     Indication: Raynaud^s phenomenon
     Dosage: 1 FORMULATION, QD
     Route: 048
     Dates: start: 20160712
  7. EPERISONE HYDROCHLORIDE [Concomitant]
     Active Substance: EPERISONE HYDROCHLORIDE
     Indication: Raynaud^s phenomenon
     Dosage: 1 FORMULATION, 0.33 DAY
     Route: 048
     Dates: start: 20170608
  8. DILTIAZEM HYDROCHLORIDE [Concomitant]
     Active Substance: DILTIAZEM HYDROCHLORIDE
     Indication: Raynaud^s phenomenon
     Dosage: 1 FORMULATION, QD
     Route: 048
     Dates: start: 20170608

REACTIONS (2)
  - Cholelithiasis [Recovered/Resolved]
  - Cholecystitis [Recovered/Resolved]

NARRATIVE: CASE EVENT DATE: 20171117
